FAERS Safety Report 11358096 (Version 1)
Quarter: 2015Q3

REPORT INFORMATION
  Report Type: Spontaneous
  Country: US (occurrence: US)
  Receive Date: 20150803
  Receipt Date: 20150803
  Transmission Date: 20151125
  Serious: No
  Sender: FDA-Public Use
  Company Number: US-ELI_LILLY_AND_COMPANY-US200905001191

PATIENT
  Age: 55 Year
  Sex: Male

DRUGS (3)
  1. STRATTERA [Suspect]
     Active Substance: ATOMOXETINE HYDROCHLORIDE
     Indication: ATTENTION DEFICIT/HYPERACTIVITY DISORDER
     Dosage: 40 MG, UNKNOWN
     Route: 065
     Dates: start: 200804
  2. VIVITROL [Concomitant]
     Active Substance: NALTREXONE
     Dosage: UNK, UNKNOWN
     Route: 065
     Dates: start: 200804
  3. EFFEXOR [Concomitant]
     Active Substance: VENLAFAXINE HYDROCHLORIDE
     Indication: DEPRESSION
     Dosage: 225 MG, UNKNOWN
     Route: 065
     Dates: start: 200404

REACTIONS (2)
  - Tongue disorder [Unknown]
  - Excessive eye blinking [Unknown]

NARRATIVE: CASE EVENT DATE: 20090423
